FAERS Safety Report 25878552 (Version 1)
Quarter: 2025Q4

REPORT INFORMATION
  Report Type: Spontaneous
  Country: EU (occurrence: None)
  Receive Date: 20251003
  Receipt Date: 20251003
  Transmission Date: 20260117
  Serious: Yes (Hospitalization)
  Sender: B. BRAUN MEDICAL INC.
  Company Number: None

PATIENT
  Age: 16 Year
  Sex: Male

DRUGS (10)
  1. METRONIDAZOLE [Suspect]
     Active Substance: METRONIDAZOLE
     Indication: Infection
     Dosage: 500*3/JOUR?500*3/DAY
     Dates: start: 20250811, end: 20250816
  2. ACYCLOVIR [Suspect]
     Active Substance: ACYCLOVIR
     Indication: Infection
     Dosage: 600MG*4/JOUR?600MG*4/DAY
     Dates: start: 20250812, end: 20250814
  3. CEFOTAXIME SODIUM [Suspect]
     Active Substance: CEFOTAXIME SODIUM
     Indication: Infection
     Dosage: 2G*4/JOUR?2G*4/DAY
     Dates: start: 20250808, end: 20250813
  4. CLINDAMYCIN HYDROCHLORIDE [Suspect]
     Active Substance: CLINDAMYCIN HYDROCHLORIDE
     Indication: Infection
     Dosage: 900MG*3/JOUR?900MG*3/DAY
     Dates: start: 20250808, end: 20250813
  5. TRIMEPRAZINE [Concomitant]
     Active Substance: TRIMEPRAZINE
     Indication: Mental disorder
     Dosage: 20MG*3/JOUR?20MG*3/DAY
     Dates: start: 20250801, end: 20250804
  6. TRANXENE [Concomitant]
     Active Substance: CLORAZEPATE DIPOTASSIUM
     Indication: Mental disorder
     Dosage: 5MG*3/JOUR?5MG*3/DAY
     Dates: start: 20250801, end: 20250805
  7. CIRCADIN 2 mg, comprim? ? lib?ration prolong?e [Concomitant]
     Indication: Mental disorder
     Dates: end: 20250814
  8. FYCOMPA 8 mg, comprim? pellicul? [Concomitant]
     Indication: Mental disorder
  9. VALPROATE SODIUM [Concomitant]
     Active Substance: VALPROATE SODIUM
     Indication: Mental disorder
     Dosage: 1G*2/J
  10. CLOBAZAM [Concomitant]
     Active Substance: CLOBAZAM
     Indication: Mental disorder

REACTIONS (1)
  - Altered state of consciousness [Recovering/Resolving]

NARRATIVE: CASE EVENT DATE: 20250812
